FAERS Safety Report 13775369 (Version 1)
Quarter: 2017Q3

REPORT INFORMATION
  Report Type: Spontaneous
  Country: US (occurrence: US)
  Receive Date: 20170720
  Receipt Date: 20170720
  Transmission Date: 20171127
  Serious: No
  Sender: FDA-Public Use
  Company Number: GXBR2016US001221

PATIENT
  Sex: Female

DRUGS (1)
  1. BACITRACIN ZINC. [Suspect]
     Active Substance: BACITRACIN ZINC
     Indication: SURGERY
     Dosage: UNK DF, UNK
     Route: 061

REACTIONS (2)
  - Vision blurred [Not Recovered/Not Resolved]
  - Exposure via eye contact [Not Recovered/Not Resolved]
